FAERS Safety Report 11560269 (Version 1)
Quarter: 2015Q3

REPORT INFORMATION
  Report Type: Spontaneous
  Country: US (occurrence: US)
  Receive Date: 20150916
  Receipt Date: 20150916
  Transmission Date: 20151125
  Serious: No
  Sender: FDA-Public Use
  Company Number: US-ELI_LILLY_AND_COMPANY-US200809004311

PATIENT
  Sex: Female

DRUGS (5)
  1. PACERONE [Concomitant]
     Active Substance: AMIODARONE HYDROCHLORIDE
  2. FORTEO [Suspect]
     Active Substance: TERIPARATIDE
     Dosage: UNK, UNK
     Dates: start: 200705
  3. THYROID THERAPY [Concomitant]
     Active Substance: UNSPECIFIED INGREDIENT
  4. DIURETICS [Concomitant]
     Active Substance: UNSPECIFIED INGREDIENT
  5. RAZADYNE ER [Concomitant]
     Active Substance: GALANTAMINE HYDROBROMIDE

REACTIONS (4)
  - Pruritus [Recovered/Resolved]
  - Parkinson^s disease [Not Recovered/Not Resolved]
  - Visual acuity reduced [Unknown]
  - Tremor [Unknown]

NARRATIVE: CASE EVENT DATE: 200705
